FAERS Safety Report 18243211 (Version 1)
Quarter: 2020Q3

REPORT INFORMATION
  Report Type: Report from Study
  Country: PE (occurrence: PE)
  Receive Date: 20200908
  Receipt Date: 20200908
  Transmission Date: 20201103
  Serious: Yes (Other)
  Sender: FDA-Public Use
  Company Number: PE-JNJFOC-20200846588

PATIENT
  Age: 5 Decade
  Sex: Female
  Weight: 107 kg

DRUGS (1)
  1. SIMPONI [Suspect]
     Active Substance: GOLIMUMAB
     Indication: PSORIATIC ARTHROPATHY
     Route: 058
     Dates: start: 20190610

REACTIONS (2)
  - Pneumonia [Not Recovered/Not Resolved]
  - Breast mass [Not Recovered/Not Resolved]

NARRATIVE: CASE EVENT DATE: 2020
